FAERS Safety Report 10494348 (Version 1)
Quarter: 2014Q3

REPORT INFORMATION
  Report Type: Spontaneous
  Country: US (occurrence: None)
  Receive Date: 20140815
  Receipt Date: 20140815
  Transmission Date: 20150326
  Serious: Yes (Other)
  Sender: FDA-Public Use
  Company Number: ADR-2014-00061

PATIENT
  Age: 50 Year
  Sex: Female

DRUGS (2)
  1. HYDROMORPHONE INTRATHECAL [Suspect]
     Active Substance: HYDROMORPHONE
  2. BACLOFEN INTRATHECAL [Suspect]
     Active Substance: BACLOFEN
     Indication: PAIN

REACTIONS (6)
  - Drug withdrawal syndrome [None]
  - Vomiting [None]
  - Influenza like illness [None]
  - Therapeutic response decreased [None]
  - Nausea [None]
  - Pain [None]

NARRATIVE: CASE EVENT DATE: 20140107
